FAERS Safety Report 17188842 (Version 2)
Quarter: 2020Q1

REPORT INFORMATION
  Report Type: Other
  Country: US (occurrence: US)
  Receive Date: 20191222
  Receipt Date: 20200324
  Transmission Date: 20200409
  Serious: No
  Sender: FDA-Public Use
  Company Number: US-ACORDA-ACO_162708_2019

PATIENT
  Age: 76 Year
  Sex: Female

DRUGS (4)
  1. AMANTADINE. [Concomitant]
     Active Substance: AMANTADINE HYDROCHLORIDE
     Indication: PRODUCT USED FOR UNKNOWN INDICATION
     Dosage: UNK
     Route: 065
  2. INBRIJA [Suspect]
     Active Substance: LEVODOPA
     Indication: ON AND OFF PHENOMENON
     Dosage: 84 MILLIGRAM, UP TO FIVE TIMES PER DAY PRN (CONTENTS OF 2 CAPSULES OF 42MG AS NEEDED FOR OFF PERIOD)
     Dates: start: 20191204
  3. INBRIJA [Suspect]
     Active Substance: LEVODOPA
     Indication: PARKINSON^S DISEASE
  4. CARBIDOPA/LEVODOPA [Concomitant]
     Active Substance: CARBIDOPA\LEVODOPA
     Indication: PRODUCT USED FOR UNKNOWN INDICATION
     Dosage: 25/ 100 MG 5 TIMES PER DAY
     Route: 065

REACTIONS (4)
  - Accidental exposure to product [Unknown]
  - Device issue [Recovered/Resolved]
  - Throat irritation [Unknown]
  - Disorientation [Unknown]

NARRATIVE: CASE EVENT DATE: 20200213
